FAERS Safety Report 20582906 (Version 2)
Quarter: 2022Q1

REPORT INFORMATION
  Report Type: Spontaneous
  Country: JP (occurrence: JP)
  Receive Date: 20220311
  Receipt Date: 20220317
  Transmission Date: 20220423
  Serious: Yes (Death)
  Sender: FDA-Public Use
  Company Number: JP-MSD-2203JPN000749J

PATIENT
  Age: 9 Decade
  Sex: Male

DRUGS (4)
  1. RECARBRIO [Suspect]
     Active Substance: CILASTATIN\IMIPENEM ANHYDROUS\RELEBACTAM ANHYDROUS
     Indication: Pneumonia pseudomonal
     Dosage: 1 GRAM, QID
     Route: 041
     Dates: start: 20211112, end: 20211118
  2. MOXALACTAM DISODIUM [Concomitant]
     Active Substance: MOXALACTAM DISODIUM
     Indication: Pneumonia
     Dosage: UNK
     Route: 041
     Dates: start: 202111, end: 202111
  3. CEFOPERAZONE SODIUM\SULBACTAM SODIUM [Concomitant]
     Active Substance: CEFOPERAZONE SODIUM\SULBACTAM SODIUM
     Indication: Pneumonia
     Dosage: UNK
     Route: 051
     Dates: start: 202111, end: 202111
  4. EXACIN [ISEPAMICIN SULFATE] [Concomitant]
     Indication: Pneumonia
     Dosage: UNK
     Route: 041
     Dates: start: 202111, end: 202111

REACTIONS (1)
  - Marasmus [Fatal]

NARRATIVE: CASE EVENT DATE: 20220201
